FAERS Safety Report 6796111-6 (Version None)
Quarter: 2010Q2

REPORT INFORMATION
  Report Type: 
  Country: None (occurrence: None)
  Receive Date: 20100625
  Receipt Date: 20100614
  Transmission Date: 20101027
  Serious: Yes (Hospitalization)
  Sender: FDA-Public Use
  Company Number: JP-ROCHE-710448

PATIENT
  Sex: Male
  Weight: 53 kg

DRUGS (24)
  1. TOCILIZUMAB [Suspect]
     Indication: RHEUMATOID ARTHRITIS
     Route: 041
     Dates: start: 20091001, end: 20091001
  2. TOCILIZUMAB [Suspect]
     Route: 041
     Dates: start: 20091028, end: 20091028
  3. TOCILIZUMAB [Suspect]
     Route: 041
     Dates: start: 20091125, end: 20091125
  4. TOCILIZUMAB [Suspect]
     Route: 041
     Dates: start: 20100112, end: 20100112
  5. TOCILIZUMAB [Suspect]
     Route: 041
     Dates: start: 20100208, end: 20100208
  6. TOCILIZUMAB [Suspect]
     Route: 041
     Dates: start: 20100308, end: 20100308
  7. TOCILIZUMAB [Suspect]
     Route: 041
     Dates: start: 20100406
  8. PREDONINE [Concomitant]
     Route: 042
     Dates: start: 20091001, end: 20091001
  9. PREDONINE [Concomitant]
     Route: 042
     Dates: start: 20091028, end: 20091028
  10. PREDONINE [Concomitant]
     Route: 042
     Dates: start: 20091125, end: 20091125
  11. PREDONINE [Concomitant]
     Route: 042
     Dates: start: 20100112, end: 20100112
  12. PREDONINE [Concomitant]
     Route: 042
     Dates: start: 20100208, end: 20100208
  13. PREDONINE [Concomitant]
     Route: 042
     Dates: start: 20100308, end: 20100308
  14. PREDONINE [Concomitant]
     Route: 042
     Dates: start: 20100406, end: 20100406
  15. LOXONIN [Concomitant]
     Dosage: DOSE FORM: PERORAL AGENT
     Route: 048
  16. SELBEX [Concomitant]
     Dosage: DOSE FORM: PERORAL AGENT
     Route: 048
  17. PREDNISOLONE [Concomitant]
     Dosage: DOSE FORM: PERORAL AGENT
     Route: 048
     Dates: end: 20091124
  18. PREDNISOLONE [Concomitant]
     Route: 048
     Dates: start: 20091125, end: 20100103
  19. PREDNISOLONE [Concomitant]
     Route: 048
     Dates: start: 20100104, end: 20100131
  20. PREDNISOLONE [Concomitant]
     Route: 048
     Dates: start: 20100201, end: 20100323
  21. PREDNISOLONE [Concomitant]
     Route: 048
     Dates: start: 20100324, end: 20100331
  22. ATARAX [Concomitant]
     Route: 042
     Dates: start: 20091028, end: 20091028
  23. PHENYTOIN SODIUM [Concomitant]
     Route: 042
  24. DEPAKENE [Concomitant]
     Route: 048

REACTIONS (4)
  - CONVULSION [None]
  - FEMUR FRACTURE [None]
  - HALLUCINATION, VISUAL [None]
  - HYPERHIDROSIS [None]
